FAERS Safety Report 8818575 (Version 1)
Quarter: 2012Q4

REPORT INFORMATION
  Report Type: Spontaneous
  Country: US (occurrence: None)
  Receive Date: 20121002
  Receipt Date: 20121002
  Transmission Date: 20130627
  Serious: Yes (Death, Hospitalization, Other)
  Sender: FDA-Public Use
  Company Number: 2012MA011491

PATIENT
  Age: 55 Year
  Sex: Male

DRUGS (3)
  1. KADIAN [Suspect]
  2. EXCEDRIN [Suspect]
     Route: 048
     Dates: end: 201104
  3. VICODIN [Suspect]
     Route: 048

REACTIONS (7)
  - Traumatic lung injury [None]
  - Procedural complication [None]
  - Haemorrhage [None]
  - Drug ineffective [None]
  - Feeling abnormal [None]
  - Thinking abnormal [None]
  - Screaming [None]
